FAERS Safety Report 25847723 (Version 2)
Quarter: 2025Q4

REPORT INFORMATION
  Report Type: Spontaneous
  Country: CN (occurrence: CN)
  Receive Date: 20250925
  Receipt Date: 20251026
  Transmission Date: 20260118
  Serious: Yes (Other)
  Sender: BEIGENE
  Company Number: CN-BEIGENE-BGN-2025-016147

PATIENT
  Age: 67 Year

DRUGS (1)
  1. BRUKINSA [Suspect]
     Active Substance: ZANUBRUTINIB
     Indication: Chronic lymphocytic leukaemia
     Dosage: UNK

REACTIONS (7)
  - Streptococcal urinary tract infection [Recovered/Resolved]
  - Corneal bleeding [Recovered/Resolved]
  - Blood urine present [Recovered/Resolved]
  - Red blood cell count abnormal [Unknown]
  - Red blood cell count decreased [Unknown]
  - Hypertension [Unknown]
  - Dizziness [Unknown]
